FAERS Safety Report 8285359-X (Version None)
Quarter: 2012Q2

REPORT INFORMATION
  Report Type: 
  Country: None (occurrence: None)
  Receive Date: 20120413
  Receipt Date: 20120409
  Transmission Date: 20120825
  Serious: No
  Sender: FDA-Public Use
  Company Number: US-PFIZER INC-2012088458

PATIENT
  Age: 72 Year
  Sex: Male

DRUGS (2)
  1. GLUCOTROL XL [Suspect]
     Dosage: 2.5 MG, DAILY
     Route: 048
  2. GLUCOTROL XL [Suspect]
     Dosage: 5 MG, EVERY OTHER DAY
     Route: 048

REACTIONS (1)
  - BLOOD GLUCOSE DECREASED [None]
